FAERS Safety Report 5051985-4 (Version None)
Quarter: 2006Q3

REPORT INFORMATION
  Report Type: 
  Country: None (occurrence: None)
  Receive Date: 20060711
  Receipt Date: 20060620
  Transmission Date: 20061208
  Serious: Yes (Hospitalization)
  Sender: FDA-Public Use
  Company Number: USA041285901

PATIENT
  Age: 66 Year
  Sex: Male

DRUGS (4)
  1. HUMALOG [Suspect]
     Indication: DIABETES MELLITUS INSULIN-DEPENDENT
     Dates: start: 20010501
  2. LANTUS [Concomitant]
  3. HYDROCHLOROTHIAZIDE [Concomitant]
  4. HUMALOG PEN [Concomitant]

REACTIONS (3)
  - PANCREATECTOMY [None]
  - PANCREATIC CARCINOMA [None]
  - PHARMACEUTICAL PRODUCT COMPLAINT [None]
